FAERS Safety Report 23099310 (Version 4)
Quarter: 2024Q2

REPORT INFORMATION
  Report Type: Spontaneous
  Country: US (occurrence: US)
  Receive Date: 20231024
  Receipt Date: 20240620
  Transmission Date: 20240715
  Serious: Yes (Hospitalization, Other)
  Sender: FDA-Public Use
  Company Number: US-INCYTE CORPORATION-2023IN011010

PATIENT

DRUGS (2)
  1. JAKAFI [Suspect]
     Active Substance: RUXOLITINIB
     Indication: Graft versus host disease
     Dosage: 10 MILLIGRAM, BID
     Route: 048
     Dates: start: 20230102
  2. REZUROCK [Suspect]
     Active Substance: BELUMOSUDIL
     Indication: Chronic myeloid leukaemia (in remission)
     Dosage: 200 MILLIGRAM, QD
     Route: 048

REACTIONS (3)
  - Myocardial infarction [Recovering/Resolving]
  - Eye pain [Not Recovered/Not Resolved]
  - Product dose omission issue [Unknown]

NARRATIVE: CASE EVENT DATE: 20230816
